FAERS Safety Report 6979721-2 (Version None)
Quarter: 2010Q3

REPORT INFORMATION
  Report Type: 
  Country: None (occurrence: None)
  Receive Date: 20100913
  Receipt Date: 20100908
  Transmission Date: 20110219
  Serious: Yes (Other)
  Sender: FDA-Public Use
  Company Number: US-BRISTOL-MYERS SQUIBB COMPANY-15277932

PATIENT
  Age: 68 Year
  Sex: Female
  Weight: 58 kg

DRUGS (10)
  1. COUMADIN [Suspect]
     Indication: ARTERIOSCLEROSIS
     Dosage: 1 DF=5MG(MON + THUR) + 2.5MG REST OF THE DAYS RESTARTED WITH ADJUSTED DOSE
     Route: 065
     Dates: start: 19800101
  2. COUMADIN [Interacting]
     Indication: CEREBROVASCULAR ACCIDENT
     Dosage: 1 DF=5MG(MON + THUR) + 2.5MG REST OF THE DAYS RESTARTED WITH ADJUSTED DOSE
     Route: 065
     Dates: start: 19800101
  3. COUMADIN [Interacting]
     Indication: VASCULAR GRAFT
     Dosage: 1 DF=5MG(MON + THUR) + 2.5MG REST OF THE DAYS RESTARTED WITH ADJUSTED DOSE
     Route: 065
     Dates: start: 19800101
  4. CHANTIX [Interacting]
     Indication: SMOKING CESSATION THERAPY
     Dosage: 0.5MG ORAL TABLETS
     Route: 048
     Dates: start: 20080101
  5. CRESTOR [Concomitant]
  6. ZETIA [Concomitant]
  7. HYDROCHLOROTHIAZIDE [Concomitant]
  8. LISINOPRIL [Concomitant]
  9. DIPYRIDAMOLE [Concomitant]
  10. CELEBREX [Concomitant]

REACTIONS (5)
  - CHEST PAIN [None]
  - DRUG INTERACTION [None]
  - DRUG LEVEL INCREASED [None]
  - HAEMORRHAGE [None]
  - OESOPHAGEAL HAEMORRHAGE [None]
